FAERS Safety Report 10173556 (Version 1)
Quarter: 2014Q2

REPORT INFORMATION
  Report Type: Spontaneous
  Country: US (occurrence: US)
  Receive Date: 20140515
  Receipt Date: 20140515
  Transmission Date: 20141212
  Serious: No
  Sender: FDA-Public Use
  Company Number: US-PFIZER INC-2014132713

PATIENT
  Age: 44 Year
  Sex: Female
  Weight: 64.85 kg

DRUGS (3)
  1. LYRICA [Suspect]
     Dosage: 50 MG, 2X/DAY
     Route: 048
     Dates: start: 20140215, end: 20140330
  2. LYRICA [Suspect]
     Dosage: 150 MG, 3X/DAY
     Route: 048
     Dates: start: 20140331
  3. EFFEXOR [Concomitant]
     Dosage: UNK

REACTIONS (1)
  - Poor quality sleep [Unknown]
